FAERS Safety Report 5762570-0 (Version None)
Quarter: 2008Q2

REPORT INFORMATION
  Report Type: 
  Country: None (occurrence: None)
  Receive Date: 20080609
  Receipt Date: 20080602
  Transmission Date: 20081010
  Serious: Yes (Other)
  Sender: FDA-Public Use
  Company Number: B0523407A

PATIENT
  Age: 43 Year
  Sex: Female
  Weight: 57 kg

DRUGS (1)
  1. ZYBAN [Suspect]
     Route: 048
     Dates: start: 20080518, end: 20080527

REACTIONS (4)
  - HEADACHE [None]
  - HYPOTENSION [None]
  - LOSS OF CONSCIOUSNESS [None]
  - WEIGHT DECREASED [None]
